FAERS Safety Report 9280156 (Version 1)
Quarter: 2013Q2

REPORT INFORMATION
  Report Type: Spontaneous
  Country: US (occurrence: US)
  Receive Date: 20130509
  Receipt Date: 20130509
  Transmission Date: 20140414
  Serious: Yes (Death, Hospitalization)
  Sender: FDA-Public Use
  Company Number: US-ACCORD-017459

PATIENT
  Age: 18 Year
  Sex: Male

DRUGS (2)
  1. MYCOPHENOLATE MOFETIL [Concomitant]
     Indication: LIVER TRANSPLANT
  2. TACROLIMUS [Suspect]
     Indication: LIVER TRANSPLANT
     Dosage: DOSE REDUCED TO 0.5 MG TWICE DAILY

REACTIONS (2)
  - Posterior reversible encephalopathy syndrome [Unknown]
  - Cerebrovascular accident [Fatal]
